FAERS Safety Report 20963861 (Version 1)
Quarter: 2022Q2

REPORT INFORMATION
  Report Type: Spontaneous
  Country: US (occurrence: US)
  Receive Date: 20220615
  Receipt Date: 20220615
  Transmission Date: 20220721
  Serious: Yes (Other)
  Sender: FDA-Public Use
  Company Number: US-AMERICAN REGENT INC-2022001654

PATIENT
  Sex: Male
  Weight: 66.3 kg

DRUGS (2)
  1. FERRIC CARBOXYMALTOSE [Suspect]
     Active Substance: FERRIC CARBOXYMALTOSE
     Indication: Iron deficiency anaemia
     Dosage: UNK
     Route: 065
  2. OCTREOTIDE [Concomitant]
     Active Substance: OCTREOTIDE
     Indication: Chronic gastrointestinal bleeding
     Dosage: 100 MILLIGRAM, BID
     Route: 058

REACTIONS (2)
  - Multiple fractures [Unknown]
  - Hypophosphataemia [Unknown]
